FAERS Safety Report 6201180-8 (Version None)
Quarter: 2009Q2

REPORT INFORMATION
  Report Type: 
  Country: None (occurrence: None)
  Receive Date: 20090526
  Receipt Date: 20090519
  Transmission Date: 20091009
  Serious: Yes (Disabling, Other)
  Sender: FDA-Public Use
  Company Number: JAUK9686

PATIENT
  Age: 58 Year
  Sex: Female

DRUGS (3)
  1. HALOPERIDOL [Suspect]
     Route: 048
  2. HALOPERIDOL [Suspect]
     Indication: HYPOMANIA
     Route: 048
  3. LITHIUM [Interacting]
     Indication: BIPOLAR I DISORDER

REACTIONS (10)
  - ABASIA [None]
  - BRAIN INJURY [None]
  - CONFUSIONAL STATE [None]
  - DISORIENTATION [None]
  - DRUG INTERACTION [None]
  - DYSKINESIA [None]
  - EXTRAPYRAMIDAL DISORDER [None]
  - MEMORY IMPAIRMENT [None]
  - MUSCLE RIGIDITY [None]
  - THERAPEUTIC AGENT TOXICITY [None]
